FAERS Safety Report 8518292 (Version 8)
Quarter: 2016Q2

REPORT INFORMATION
  Report Type: Spontaneous
  Country: US (occurrence: US)
  Receive Date: 20120417
  Receipt Date: 20160627
  Transmission Date: 20160815
  Serious: Yes (Other)
  Sender: FDA-Public Use
  Company Number: US-ASTRAZENECA-2012SE09235

PATIENT
  Age: 55 Year
  Sex: Female
  Weight: 88.5 kg

DRUGS (15)
  1. NEXIUM [Suspect]
     Active Substance: ESOMEPRAZOLE MAGNESIUM
     Indication: ABDOMINAL HERNIA
     Dosage: 40.0MG UNKNOWN
     Route: 048
  2. TOPROL XL [Suspect]
     Active Substance: METOPROLOL SUCCINATE
     Indication: AORTIC VALVE INCOMPETENCE
     Route: 048
     Dates: start: 1996
  3. NEXIUM [Suspect]
     Active Substance: ESOMEPRAZOLE MAGNESIUM
     Route: 048
  4. LISINOPRIL. [Suspect]
     Active Substance: LISINOPRIL
     Indication: HYPERTENSION
     Route: 048
  5. GLUCOPHAGE [Concomitant]
     Active Substance: METFORMIN HYDROCHLORIDE
     Indication: DIABETES MELLITUS
     Route: 048
  6. NEURONTIN [Concomitant]
     Active Substance: GABAPENTIN
     Dosage: 600 MG, THREE TIMES DAILY
     Route: 048
  7. NEXIUM [Suspect]
     Active Substance: ESOMEPRAZOLE MAGNESIUM
     Indication: ULCER
     Dosage: 40.0MG UNKNOWN
     Route: 048
  8. VITAMIN B12 [Concomitant]
     Active Substance: CYANOCOBALAMIN
     Indication: PERNICIOUS ANAEMIA
     Route: 030
     Dates: start: 1998
  9. PHENOBARBITAL. [Concomitant]
     Active Substance: PHENOBARBITAL
     Indication: SEIZURE
     Route: 048
  10. FUROSEMIDE. [Concomitant]
     Active Substance: FUROSEMIDE
     Indication: OEDEMA
     Dosage: 40 MG, TWO TIMES DAILY
     Route: 048
  11. TOPROL XL [Suspect]
     Active Substance: METOPROLOL SUCCINATE
     Indication: HYPERTENSION
     Route: 048
     Dates: start: 1996
  12. GABAPENTIN. [Concomitant]
     Active Substance: GABAPENTIN
  13. NEXIUM [Suspect]
     Active Substance: ESOMEPRAZOLE MAGNESIUM
     Indication: IMPAIRED GASTRIC EMPTYING
     Dosage: 40.0MG UNKNOWN
     Route: 048
  14. NEXIUM [Suspect]
     Active Substance: ESOMEPRAZOLE MAGNESIUM
     Indication: GASTROOESOPHAGEAL REFLUX DISEASE
     Dosage: 40.0MG UNKNOWN
     Route: 048
  15. METOPROLOL. [Suspect]
     Active Substance: METOPROLOL
     Route: 048

REACTIONS (31)
  - Cardiomegaly [Unknown]
  - Nausea [Unknown]
  - Abdominal discomfort [Unknown]
  - Drug dose omission [Unknown]
  - Peripheral ischaemia [Unknown]
  - Abasia [Unknown]
  - Abdominal pain upper [Unknown]
  - Nerve compression [Unknown]
  - Off label use [Unknown]
  - Blood pressure increased [Unknown]
  - Generalised tonic-clonic seizure [Unknown]
  - Contusion [Unknown]
  - Asthenia [Unknown]
  - Feeding disorder [Unknown]
  - Ulcer [Unknown]
  - Gastrooesophageal reflux disease [Unknown]
  - Regurgitation [Unknown]
  - End stage renal disease [Unknown]
  - Weight decreased [Not Recovered/Not Resolved]
  - Product use issue [Unknown]
  - Intentional product misuse [Unknown]
  - Foot fracture [Unknown]
  - Cerebrovascular accident [Recovered/Resolved with Sequelae]
  - Dyspepsia [Unknown]
  - Diabetes mellitus [Unknown]
  - Aortic stenosis [Unknown]
  - Aortic valve incompetence [Unknown]
  - Fall [Unknown]
  - Cardiac murmur [Unknown]
  - Pernicious anaemia [Unknown]
  - Thermal burn [Unknown]

NARRATIVE: CASE EVENT DATE: 1996
